FAERS Safety Report 6541583-5 (Version None)
Quarter: 2010Q1

REPORT INFORMATION
  Report Type: 
  Country: None (occurrence: None)
  Receive Date: 20100119
  Receipt Date: 20100113
  Transmission Date: 20100710
  Serious: Yes (Other)
  Sender: FDA-Public Use
  Company Number: JP-ROCHE-679736

PATIENT
  Sex: Male

DRUGS (4)
  1. TAMIFLU [Suspect]
     Indication: INFLUENZA
     Route: 048
     Dates: start: 20091204, end: 20091208
  2. GLUFAST [Concomitant]
     Route: 048
     Dates: start: 20060101
  3. GLUCOBAY [Concomitant]
     Route: 048
     Dates: start: 20060101
  4. THYRADIN [Concomitant]
     Route: 048
     Dates: start: 20060101

REACTIONS (3)
  - HEPATIC FUNCTION ABNORMAL [None]
  - INTERSTITIAL LUNG DISEASE [None]
  - RASH [None]
